FAERS Safety Report 8239716-8 (Version None)
Quarter: 2012Q1

REPORT INFORMATION
  Report Type: 
  Country: None (occurrence: None)
  Receive Date: 20120309
  Receipt Date: 20110614
  Transmission Date: 20120608
  Serious: No
  Sender: FDA-Public Use
  Company Number: PHHY2010US89777

PATIENT
  Age: 42 Year

DRUGS (2)
  1. EXTAVIA [Suspect]
     Indication: MULTIPLE SCLEROSIS
     Dosage: 0.062 MG QOD, SUBCUTANEOUS
     Route: 058
     Dates: start: 20101217, end: 20110117
  2. EXTAVIA [Suspect]
     Dosage: 0.25 MG, QOD, SUBCUTANEOUS
     Route: 058
     Dates: start: 20110407

REACTIONS (5)
  - INJECTION SITE ERYTHEMA [None]
  - INJECTION SITE DISCOLOURATION [None]
  - INSOMNIA [None]
  - TREMOR [None]
  - INJECTION SITE PAIN [None]
